FAERS Safety Report 12053279 (Version 1)
Quarter: 2016Q1

REPORT INFORMATION
  Report Type: Spontaneous
  Country: US (occurrence: US)
  Receive Date: 20160209
  Receipt Date: 20160209
  Transmission Date: 20160526
  Serious: Yes (Other)
  Sender: FDA-Public Use
  Company Number: US-ENDO PHARMACEUTICALS INC.-201502019

PATIENT
  Age: 47 Year
  Sex: Male
  Weight: 112.59 kg

DRUGS (2)
  1. TESTIM [Suspect]
     Active Substance: TESTOSTERONE
     Indication: PRODUCT USED FOR UNKNOWN INDICATION
     Route: 062
     Dates: start: 201207, end: 201302
  2. FORTESTA [Suspect]
     Active Substance: TESTOSTERONE
     Indication: FATIGUE
     Route: 061
     Dates: start: 20120703, end: 20130222

REACTIONS (1)
  - Deep vein thrombosis [Unknown]

NARRATIVE: CASE EVENT DATE: 20121115
